FAERS Safety Report 7302224-2 (Version None)
Quarter: 2011Q1

REPORT INFORMATION
  Report Type: 
  Country: None (occurrence: None)
  Receive Date: 20110218
  Receipt Date: 20110209
  Transmission Date: 20110831
  Serious: Yes (Other)
  Sender: FDA-Public Use
  Company Number: PHHY2011JP03379

PATIENT
  Sex: Female

DRUGS (3)
  1. SAXIZON [Concomitant]
  2. PENICILLIN NOS [Concomitant]
  3. VOLTAREN [Suspect]
     Indication: ANALGESIC ASTHMA SYNDROME
     Route: 048

REACTIONS (1)
  - ANAPHYLACTIC SHOCK [None]
